FAERS Safety Report 11168364 (Version 1)
Quarter: 2015Q2

REPORT INFORMATION
  Report Type: Spontaneous
  Country: US (occurrence: None)
  Receive Date: 20150604
  Receipt Date: 20150604
  Transmission Date: 20150821
  Serious: Yes (Life-Threatening, Hospitalization, Disabling)
  Sender: FDA-Public Use
  Company Number: None

PATIENT
  Age: 47 Year
  Sex: Female
  Weight: 113.4 kg

DRUGS (8)
  1. VITAMIN B12 [Concomitant]
     Active Substance: CYANOCOBALAMIN
  2. VITAMIN D [Concomitant]
     Active Substance: CHOLECALCIFEROL
  3. IRON [Concomitant]
     Active Substance: IRON
  4. HUMIRA [Suspect]
     Active Substance: ADALIMUMAB
     Indication: CROHN^S DISEASE
     Dosage: MONTH AND HALF
  5. MULTIPLE SUPPLEMENTS [Concomitant]
  6. REMICADE INFUSION [Concomitant]
  7. FOLATE [Concomitant]
     Active Substance: FOLATE SODIUM
  8. ZINC [Concomitant]
     Active Substance: ZINC\ZINC CHLORIDE

REACTIONS (5)
  - Hepatic steatosis [None]
  - Abdominal pain [None]
  - Large intestinal haemorrhage [None]
  - Lipoma [None]
  - Palpitations [None]

NARRATIVE: CASE EVENT DATE: 20150401
